FAERS Safety Report 4456740-1 (Version None)
Quarter: 2004Q3

REPORT INFORMATION
  Report Type: 
  Country: None (occurrence: None)
  Receive Date: 20040923
  Receipt Date: 20040915
  Transmission Date: 20050211
  Serious: Yes (Death)
  Sender: FDA-Public Use
  Company Number: JP-JNJFOC-20040900931

PATIENT
  Sex: Male

DRUGS (23)
  1. FENTANYL [Suspect]
     Route: 062
     Dates: start: 20040705, end: 20040801
  2. FENTANYL [Suspect]
     Indication: CANCER PAIN
     Route: 062
     Dates: start: 20040705, end: 20040801
  3. MAGNESIUM OXIDE [Concomitant]
     Indication: CONSTIPATION
     Route: 049
     Dates: start: 20040628, end: 20040727
  4. FAMOTIDINE [Concomitant]
     Indication: GASTRIC ULCER
     Route: 049
     Dates: start: 20040628, end: 20040727
  5. TEPRENONE [Concomitant]
     Indication: GASTRIC ULCER
     Route: 049
     Dates: start: 20040628, end: 20040727
  6. ASPIRIN [Concomitant]
     Indication: THROMBOSIS
     Route: 049
     Dates: start: 20040628, end: 20040720
  7. METILDIGOXIN [Concomitant]
     Indication: ARRHYTHMIA
     Route: 049
     Dates: start: 20040628, end: 20040720
  8. PROCHLORPERAZINE MALEATE [Concomitant]
     Route: 049
  9. FUROSEMIDE [Concomitant]
     Indication: PLEURAL EFFUSION
     Route: 049
     Dates: start: 20040705, end: 20040720
  10. SPIRONOLACTONE [Concomitant]
     Indication: PLEURAL EFFUSION
     Route: 049
     Dates: start: 20040705, end: 20040720
  11. MORPHINE HYDROCHLORIDE [Concomitant]
     Route: 049
     Dates: start: 20040703
  12. MORPHINE HYDROCHLORIDE [Concomitant]
     Indication: CANCER PAIN
     Route: 049
     Dates: start: 20040703
  13. MIXED AMINO ACID, CARBOHYDRATE, ELECTROLYTE [Concomitant]
     Indication: PARENTERAL NUTRITION
     Dates: start: 20040720, end: 20040801
  14. MULTIPLE VITAMIN [Concomitant]
     Dates: start: 20040720, end: 20040801
  15. MULTIPLE VITAMIN [Concomitant]
     Dates: start: 20040720, end: 20040801
  16. MULTIPLE VITAMIN [Concomitant]
     Dates: start: 20040720, end: 20040801
  17. MULTIPLE VITAMIN [Concomitant]
     Dates: start: 20040720, end: 20040801
  18. MULTIPLE VITAMIN [Concomitant]
     Dates: start: 20040720, end: 20040801
  19. MULTIPLE VITAMIN [Concomitant]
     Dates: start: 20040720, end: 20040801
  20. MULTIPLE VITAMIN [Concomitant]
     Dates: start: 20040720, end: 20040801
  21. MULTIPLE VITAMIN [Concomitant]
     Indication: PARENTERAL NUTRITION
     Dates: start: 20040720, end: 20040801
  22. MANGANESE CHLORIDE [Concomitant]
     Indication: PARENTERAL NUTRITION
     Dates: start: 20040720, end: 20040801
  23. ZINC SULFATE [Concomitant]
     Indication: PARENTERAL NUTRITION
     Dates: start: 20040720, end: 20040801

REACTIONS (1)
  - MALIGNANT NEOPLASM PROGRESSION [None]
